FAERS Safety Report 12181135 (Version 5)
Quarter: 2016Q3

REPORT INFORMATION
  Report Type: Spontaneous
  Country: CA (occurrence: CA)
  Receive Date: 20160315
  Receipt Date: 20160808
  Transmission Date: 20161109
  Serious: Yes (Disabling, Other)
  Sender: FDA-Public Use
  Company Number: CA-PFIZER INC-2016150655

PATIENT
  Age: 52 Year
  Sex: Male

DRUGS (2)
  1. XELJANZ [Suspect]
     Active Substance: TOFACITINIB CITRATE
     Indication: RHEUMATOID ARTHRITIS
     Dosage: 5 MG, 2X/DAY
     Route: 048
     Dates: start: 20160229
  2. CELEBREX [Suspect]
     Active Substance: CELECOXIB
     Dosage: 200 MG, AS NEEDED
     Route: 048

REACTIONS (9)
  - Mobility decreased [Unknown]
  - Sensitivity to weather change [Unknown]
  - Swelling [Recovering/Resolving]
  - Synovial fluid white blood cells positive [Unknown]
  - Joint effusion [Unknown]
  - Pain [Recovering/Resolving]
  - Musculoskeletal stiffness [Not Recovered/Not Resolved]
  - Ligament sprain [Recovering/Resolving]
  - Headache [Unknown]
